FAERS Safety Report 17451092 (Version 1)
Quarter: 2020Q1

REPORT INFORMATION
  Report Type: Spontaneous
  Country: GB (occurrence: GB)
  Receive Date: 20200224
  Receipt Date: 20200224
  Transmission Date: 20200409
  Serious: Yes (Other)
  Sender: FDA-Public Use
  Company Number: GB-PFIZER INC-2020073213

PATIENT
  Age: 61 Year
  Sex: Female
  Weight: 84 kg

DRUGS (18)
  1. FENOFIBRATE. [Concomitant]
     Active Substance: FENOFIBRATE
     Dosage: 1 DF, DAILY
     Dates: start: 20190509
  2. CARVEDILOL. [Concomitant]
     Active Substance: CARVEDILOL
     Dosage: 2 DF, DAILY
     Dates: start: 20190509
  3. BIQUELLE XL [Concomitant]
     Active Substance: QUETIAPINE FUMARATE
     Dosage: 3 DF, DAILY AT NIGHT
     Dates: start: 20190509, end: 20191120
  4. CODEINE PHOSPHATE [Concomitant]
     Active Substance: CODEINE PHOSPHATE
     Dosage: 2 DF, DAILY
     Dates: start: 20200107
  5. AMILORIDE HYDROCHLORIDE. [Concomitant]
     Active Substance: AMILORIDE HYDROCHLORIDE
     Dosage: 1 DF, DAILY EACH MORNING
     Dates: start: 20200107
  6. SALBUTAMOL [Concomitant]
     Active Substance: ALBUTEROL
     Dosage: 2 DF, AS NEEDED
     Route: 055
     Dates: start: 20190509
  7. LEVOTHYROXINE. [Concomitant]
     Active Substance: LEVOTHYROXINE
     Dosage: 1 DF, DAILY EACH MORNING
     Dates: start: 20190509
  8. LOPERAMIDE [Concomitant]
     Active Substance: LOPERAMIDE
     Dosage: 40 ML, DAILY (TWO 5ML SPOONFULS)
     Dates: start: 20190509
  9. VENLAFAXINE XL ASPIRE PHARMA [Concomitant]
     Dosage: 1 DF, DAILY
     Dates: start: 20191210, end: 20200107
  10. IMRALDI [Concomitant]
     Active Substance: ADALIMUMAB
     Dosage: 40 MG, EVERY 2 WEEKS
     Route: 058
     Dates: start: 20200107
  11. SONDATE XL [Concomitant]
     Active Substance: QUETIAPINE FUMARATE
     Dosage: 3 DF, DAILY AT NIGHT
     Dates: start: 20191120
  12. VENLAFAXINE [Concomitant]
     Active Substance: VENLAFAXINE HYDROCHLORIDE
     Dosage: 6 DF, DAILY TAKE FOUR IN THE MORNING AND TWO AT NIGHT
     Dates: start: 20190509
  13. FOLIC ACID. [Concomitant]
     Active Substance: FOLIC ACID
     Dosage: 1 DF, DAILY
     Dates: start: 20190509
  14. SULFASALAZINE. [Suspect]
     Active Substance: SULFASALAZINE
     Indication: COLITIS ULCERATIVE
     Dosage: 2 G, DAILY
     Route: 048
     Dates: start: 20190807, end: 20200107
  15. GABAPENTIN. [Concomitant]
     Active Substance: GABAPENTIN
     Dosage: 6 DF, DAILY
     Dates: start: 20190509
  16. PREDNISOLONE. [Concomitant]
     Active Substance: PREDNISOLONE
     Dosage: 2 DF, DAILY
     Dates: start: 20191014
  17. RANITIDINE. [Concomitant]
     Active Substance: RANITIDINE
     Dosage: 2 DF, DAILY
     Dates: start: 20190813
  18. AMLODIPINE [Concomitant]
     Active Substance: AMLODIPINE BESYLATE
     Dosage: 1 DF, DAILY
     Dates: start: 20190509

REACTIONS (4)
  - Noninfective gingivitis [Recovered/Resolved]
  - Glossitis [Recovered/Resolved]
  - Oropharyngeal pain [Recovered/Resolved]
  - Stomatitis [Recovered/Resolved]
